FAERS Safety Report 5714744-2 (Version None)
Quarter: 2008Q2

REPORT INFORMATION
  Report Type: 
  Country: None (occurrence: None)
  Receive Date: 20080423
  Receipt Date: 20060104
  Transmission Date: 20081010
  Serious: Yes (Death, Hospitalization, Disabling, Other)
  Sender: FDA-Public Use
  Company Number: AR-ROCHE-430677

PATIENT
  Sex: Female

DRUGS (6)
  1. CAPECITABINE [Suspect]
     Indication: BREAST CANCER
     Route: 048
     Dates: start: 20051207, end: 20051217
  2. IXABEPILONE [Suspect]
     Indication: BREAST CANCER
     Dosage: COURSE 4 STARTED ON 07 DECEMBER 2005.
     Route: 042
     Dates: start: 20051207, end: 20051207
  3. FERROUS SULFATE TAB [Concomitant]
     Dates: start: 20051109, end: 20051221
  4. LORAZEPAM [Concomitant]
     Dates: start: 20051129
  5. ESCITALOPRAM OXALATE [Concomitant]
     Dates: start: 20051208, end: 20051221
  6. KETOCONAZOLE [Concomitant]
     Dates: start: 20051215, end: 20051220

REACTIONS (3)
  - DEATH [None]
  - HYPERGLYCAEMIA [None]
  - PERIPHERAL SENSORY NEUROPATHY [None]
